FAERS Safety Report 24572381 (Version 2)
Quarter: 2025Q3

REPORT INFORMATION
  Report Type: Spontaneous
  Country: US (occurrence: US)
  Receive Date: 20241101
  Receipt Date: 20250909
  Transmission Date: 20251021
  Serious: No
  Sender: BRISTOL-MYERS SQUIBB COMPANY
  Company Number: US-BRISTOL-MYERS SQUIBB COMPANY-2024-171084

PATIENT
  Age: 66 Year
  Sex: Female

DRUGS (2)
  1. ORENCIA [Suspect]
     Active Substance: ABATACEPT
     Indication: Rheumatoid arthritis
     Dates: start: 202201
  2. ORENCIA [Suspect]
     Active Substance: ABATACEPT
     Dates: start: 202201

REACTIONS (6)
  - Joint swelling [Unknown]
  - Arthralgia [Unknown]
  - Arthritis [Recovered/Resolved]
  - Pain [Recovering/Resolving]
  - Discomfort [Unknown]
  - Swelling [Unknown]
